FAERS Safety Report 4344958-8 (Version None)
Quarter: 2004Q2

REPORT INFORMATION
  Report Type: 
  Country: None (occurrence: None)
  Receive Date: 20040420
  Receipt Date: 20040406
  Transmission Date: 20050107
  Serious: Yes (Hospitalization)
  Sender: FDA-Public Use
  Company Number: US-JNJFOC-20040401238

PATIENT
  Age: 46 Year
  Sex: Male
  Weight: 78.9259 kg

DRUGS (15)
  1. INFLIXIMAB (INFLIXIMAB, RECOMBINANT) LYOPHILIZED POWDER [Suspect]
     Indication: RHEUMATOID ARTHRITIS
     Dosage: INTRAVENOUS
     Route: 042
     Dates: end: 20030626
  2. INFLIXIMAB (INFLIXIMAB, RECOMBINANT) LYOPHILIZED POWDER [Suspect]
     Indication: RHEUMATOID ARTHRITIS
     Dosage: INTRAVENOUS
     Route: 042
     Dates: start: 20010106
  3. ARAVA [Concomitant]
  4. CALCIUM (CALCIUM) [Concomitant]
  5. FOLIC ACID [Concomitant]
  6. FOSAMAX [Concomitant]
  7. METHOTREXATE [Concomitant]
  8. MONOPRIL [Concomitant]
  9. MULTIVITAMIN (MULTIVITAMINS) [Concomitant]
  10. PERCOCET [Concomitant]
  11. PREDNISONE [Concomitant]
  12. VOLTAREN [Concomitant]
  13. NEXIUM [Concomitant]
  14. LIPITOR [Concomitant]
  15. LOSARTAN (LOSARTAN) [Concomitant]

REACTIONS (9)
  - BLOOD PRESSURE SYSTOLIC DECREASED [None]
  - DIARRHOEA [None]
  - LISTERIOSIS [None]
  - MARKEDLY REDUCED DIETARY INTAKE [None]
  - MYALGIA [None]
  - PYREXIA [None]
  - RENAL FAILURE [None]
  - SEPTIC SHOCK [None]
  - STAPHYLOCOCCAL INFECTION [None]
